FAERS Safety Report 14145488 (Version 1)
Quarter: 2017Q4

REPORT INFORMATION
  Report Type: Spontaneous
  Country: US (occurrence: US)
  Receive Date: 20171030
  Receipt Date: 20171030
  Transmission Date: 20180321
  Serious: Yes (Hospitalization)
  Sender: FDA-Public Use
  Company Number: None

PATIENT
  Age: 35 Year
  Sex: Female
  Weight: 74.3 kg

DRUGS (1)
  1. IOPAMIDOL [Suspect]
     Active Substance: IOPAMIDOL
     Dosage: ?          OTHER FREQUENCY:ONE TIME;?
     Route: 040

REACTIONS (5)
  - Oesophageal disorder [None]
  - Chest discomfort [None]
  - Urticaria [None]
  - Swelling [None]
  - Mouth swelling [None]
